FAERS Safety Report 6121984-X (Version None)
Quarter: 2009Q1

REPORT INFORMATION
  Report Type: 
  Country: None (occurrence: None)
  Receive Date: 20090316
  Receipt Date: 20090310
  Transmission Date: 20090719
  Serious: Yes (Death)
  Sender: FDA-Public Use
  Company Number: KV200900293

PATIENT
  Age: 80 Year
  Sex: Male

DRUGS (5)
  1. MORPHINE SULFATE [Suspect]
     Indication: BACK PAIN
     Dosage: ORAL
     Route: 048
  2. VALIUM [Concomitant]
  3. VICODIN [Concomitant]
  4. NEURONTIN [Concomitant]
  5. INSULIN [Concomitant]

REACTIONS (5)
  - COMPLETED SUICIDE [None]
  - DRUG LEVEL INCREASED [None]
  - GUN SHOT WOUND [None]
  - INTENTIONAL SELF-INJURY [None]
  - PRODUCT QUALITY ISSUE [None]
